FAERS Safety Report 23820113 (Version 1)
Quarter: 2024Q2

REPORT INFORMATION
  Report Type: Spontaneous
  Country: US (occurrence: None)
  Receive Date: 20240503
  Receipt Date: 20240503
  Transmission Date: 20240716
  Serious: No
  Sender: FDA-Public Use
  Company Number: None

PATIENT
  Age: 48 Year
  Sex: Female
  Weight: 72 kg

DRUGS (3)
  1. MENTHOL [Suspect]
     Active Substance: MENTHOL
     Indication: Rash
     Dosage: OTHER STRENGTH : POWDER;?OTHER QUANTITY : 1 POWDER;?FREQUENCY : AS NEEDED;?
     Route: 061
     Dates: start: 20240501, end: 20240502
  2. LEVOTHYROXINE [Concomitant]
     Active Substance: LEVOTHYROXINE\LEVOTHYROXINE SODIUM
  3. VITAMIN C [Concomitant]
     Active Substance: ASCORBIC ACID

REACTIONS (3)
  - Rash pruritic [None]
  - Rash papular [None]
  - Application site reaction [None]

NARRATIVE: CASE EVENT DATE: 20240501
